FAERS Safety Report 23967058 (Version 2)
Quarter: 2024Q2

REPORT INFORMATION
  Report Type: Spontaneous
  Country: US (occurrence: US)
  Receive Date: 20240612
  Receipt Date: 20240619
  Transmission Date: 20240716
  Serious: No
  Sender: FDA-Public Use
  Company Number: US-PFIZER INC-202400190488

PATIENT
  Sex: Female

DRUGS (2)
  1. LEVOXYL [Suspect]
     Active Substance: LEVOTHYROXINE SODIUM
     Dosage: UNK
     Dates: start: 2008
  2. CALCIUM [Concomitant]
     Active Substance: CALCIUM
     Dosage: UNK, EVERY 12 HOURS OR 2X/DAY (4 HOURS APART FROM THE LEVOXYL)

REACTIONS (4)
  - Sleep disorder [Unknown]
  - Muscle spasms [Unknown]
  - Irritability [Unknown]
  - Temperature intolerance [Unknown]
